FAERS Safety Report 4463757-X (Version None)
Quarter: 2004Q3

REPORT INFORMATION
  Report Type: 
  Country: None (occurrence: None)
  Receive Date: 20040929
  Receipt Date: 20040913
  Transmission Date: 20050211
  Serious: Yes (Life-Threatening, Hospitalization)
  Sender: FDA-Public Use
  Company Number: FR_040904745

PATIENT
  Age: 57 Year
  Sex: Female
  Weight: 67 kg

DRUGS (6)
  1. ZYPREXA [Suspect]
     Dosage: 5 MG/1 DAY
  2. TERCIAN (CYAMEMAZINE) [Concomitant]
  3. OMEPRAZOLE [Concomitant]
  4. CARVEDILOL [Concomitant]
  5. RAMIPRIL [Concomitant]
  6. FEMARA [Concomitant]

REACTIONS (9)
  - BLOOD CREATININE INCREASED [None]
  - HEPATIC STEATOSIS [None]
  - HYPOALBUMINAEMIA [None]
  - HYPOPROTEINAEMIA [None]
  - HYPOVOLAEMIC SHOCK [None]
  - INFLAMMATION [None]
  - KETOACIDOSIS [None]
  - PANCREATITIS ACUTE [None]
  - PANCREATITIS NECROTISING [None]
